FAERS Safety Report 7425764-4 (Version None)
Quarter: 2011Q2

REPORT INFORMATION
  Report Type: 
  Country: None (occurrence: None)
  Receive Date: 20110418
  Receipt Date: 20110418
  Transmission Date: 20111010
  Serious: No
  Sender: FDA-Public Use
  Company Number: None

PATIENT
  Sex: Female

DRUGS (1)
  1. HUMIRA [Suspect]
     Indication: CROHN'S DISEASE
     Dosage: 40 MG (1 INJ) EVERY OTHER WEEK SUBCUTANEOUS INJ
     Route: 058
     Dates: start: 20110301, end: 20110401

REACTIONS (4)
  - SIMILAR REACTION ON PREVIOUS EXPOSURE TO DRUG [None]
  - PNEUMONIA [None]
  - HYPOPHAGIA [None]
  - OLIGODIPSIA [None]
